FAERS Safety Report 5944189-1 (Version None)
Quarter: 2008Q4

REPORT INFORMATION
  Report Type: 
  Country: None (occurrence: None)
  Receive Date: 20081104
  Receipt Date: 20081029
  Transmission Date: 20090506
  Serious: Yes (Life-Threatening, Hospitalization, Other)
  Sender: FDA-Public Use
  Company Number: CLOF-1000298

PATIENT
  Age: 38 Year
  Sex: Female

DRUGS (3)
  1. CLOFARABINE(CLORAFABINE) SOLUTION FOR INFUSION [Suspect]
     Indication: ACUTE LYMPHOCYTIC LEUKAEMIA
     Dosage: 40 MG/M2, QD, INTRAVENOUS
     Route: 042
     Dates: start: 20080918, end: 20080918
  2. CLOFARABINE(CLORAFABINE) SOLUTION FOR INFUSION [Suspect]
     Indication: ACUTE LYMPHOCYTIC LEUKAEMIA
     Dosage: 40 MG/M2, QD, INTRAVENOUS
     Route: 042
     Dates: start: 20080919, end: 20080922
  3. CLOFARABINE (CLOFARABINE) SOLUTION FOR INFUSION [Suspect]

REACTIONS (6)
  - ENTEROCOCCAL BACTERAEMIA [None]
  - FUNGAEMIA [None]
  - HAEMODIALYSIS [None]
  - PANCREATITIS [None]
  - RENAL FAILURE ACUTE [None]
  - RESPIRATORY FAILURE [None]
